FAERS Safety Report 7731740-4 (Version None)
Quarter: 2011Q3

REPORT INFORMATION
  Report Type: 
  Country: None (occurrence: None)
  Receive Date: 20110906
  Receipt Date: 20110826
  Transmission Date: 20111222
  Serious: Yes (Other)
  Sender: FDA-Public Use
  Company Number: CN-ASTRAZENECA-2011SE51258

PATIENT
  Age: 52 Year
  Sex: Female
  Weight: 45 kg

DRUGS (3)
  1. ROPIVACAINE HYDROCHLORIDE [Suspect]
     Indication: ANAESTHESIA PROCEDURE
     Route: 053
  2. LIDOCAINE [Suspect]
     Indication: ANAESTHESIA PROCEDURE
     Route: 053
  3. DIAZEPAM [Concomitant]
     Dosage: 10MG
     Route: 030

REACTIONS (13)
  - TENSION [None]
  - AGITATION [None]
  - PALPITATIONS [None]
  - CHEST DISCOMFORT [None]
  - CONFUSIONAL STATE [None]
  - BLOOD PRESSURE DECREASED [None]
  - HYPERSENSITIVITY [None]
  - WHEEZING [None]
  - BREATH HOLDING [None]
  - LOGORRHOEA [None]
  - OXYGEN SATURATION DECREASED [None]
  - HEART RATE INCREASED [None]
  - ARRHYTHMIA [None]
